FAERS Safety Report 7306176-0 (Version None)
Quarter: 2011Q1

REPORT INFORMATION
  Report Type: 
  Country: None (occurrence: None)
  Receive Date: 20110222
  Receipt Date: 20110214
  Transmission Date: 20110831
  Serious: Yes (Death)
  Sender: FDA-Public Use
  Company Number: CA-JNJFOC-20100704521

PATIENT
  Sex: Female
  Weight: 130 kg

DRUGS (1)
  1. REMICADE [Suspect]
     Indication: PYODERMA
     Route: 042

REACTIONS (1)
  - DEATH [None]
